FAERS Safety Report 6632258-2 (Version None)
Quarter: 2010Q1

REPORT INFORMATION
  Report Type: 
  Country: None (occurrence: None)
  Receive Date: 20100310
  Receipt Date: 20100225
  Transmission Date: 20100710
  Serious: Yes (Other)
  Sender: FDA-Public Use
  Company Number: 2010US000662

PATIENT
  Age: 86 Year
  Sex: Female

DRUGS (6)
  1. VESICARE [Suspect]
     Indication: BLADDER DISORDER
     Dosage: 10 MG, UID/QD, ORAL; ORAL
     Route: 048
     Dates: start: 20060101, end: 20100211
  2. VESICARE [Suspect]
     Indication: BLADDER DISORDER
     Dosage: 10 MG, UID/QD, ORAL; ORAL
     Route: 048
     Dates: start: 20100225
  3. LISINOPRIL [Concomitant]
  4. ZOCOR [Concomitant]
  5. VITAMIN D NOS (VITAMIN D NOS) [Concomitant]
  6. ASPIRIN [Concomitant]

REACTIONS (5)
  - ASTHENIA [None]
  - CONSTIPATION [None]
  - DIZZINESS [None]
  - HOT FLUSH [None]
  - UTERINE DILATION AND CURETTAGE [None]
